FAERS Safety Report 18964478 (Version 1)
Quarter: 2021Q1

REPORT INFORMATION
  Report Type: Spontaneous
  Country: US (occurrence: US)
  Receive Date: 20210303
  Receipt Date: 20210303
  Transmission Date: 20210420
  Serious: No
  Sender: FDA-Public Use
  Company Number: US-AMNEAL PHARMACEUTICALS-2020-AMRX-03581

PATIENT
  Age: 82 Year
  Sex: Male
  Weight: 88 kg

DRUGS (3)
  1. RYTARY [Suspect]
     Active Substance: CARBIDOPA\LEVODOPA
     Dosage: 61.25/245 MG, 3 CAPSULES, TID
     Route: 048
     Dates: start: 20201013, end: 202011
  2. RYTARY [Suspect]
     Active Substance: CARBIDOPA\LEVODOPA
     Dosage: 48.75/195MG, UNK
     Route: 048
  3. RYTARY [Suspect]
     Active Substance: CARBIDOPA\LEVODOPA
     Indication: PARKINSON^S DISEASE
     Dosage: 36.25/145 MG, 1 CAPSULES, TID
     Route: 048

REACTIONS (4)
  - Hallucination, tactile [Recovering/Resolving]
  - Tremor [Recovered/Resolved]
  - Condition aggravated [Recovering/Resolving]
  - Freezing phenomenon [Recovered/Resolved]

NARRATIVE: CASE EVENT DATE: 2020
